FAERS Safety Report 4290888-X (Version None)
Quarter: 2004Q1

REPORT INFORMATION
  Report Type: 
  Country: None (occurrence: None)
  Receive Date: 20040211
  Receipt Date: 20031111
  Transmission Date: 20041129
  Serious: Yes (Hospitalization)
  Sender: FDA-Public Use
  Company Number: US-BRISTOL-MYERS SQUIBB COMPANY-12433140

PATIENT
  Age: 45 Year
  Sex: Female
  Weight: 61 kg

DRUGS (2)
  1. ABILIFY [Suspect]
     Indication: BIPOLAR DISORDER
     Route: 048
     Dates: start: 20031001, end: 20031010
  2. CLONAZEPAM [Concomitant]

REACTIONS (5)
  - COLD SWEAT [None]
  - DYSPHEMIA [None]
  - FALL [None]
  - GAIT DISTURBANCE [None]
  - RESTLESSNESS [None]
